FAERS Safety Report 14746481 (Version 1)
Quarter: 2018Q2

REPORT INFORMATION
  Report Type: Other
  Country: GB (occurrence: GB)
  Receive Date: 20180411
  Receipt Date: 20180411
  Transmission Date: 20180711
  Serious: Yes (Other)
  Sender: FDA-Public Use
  Company Number: GB-GLENMARK PHARMACEUTICALS-2018GMK034128

PATIENT

DRUGS (2)
  1. LAMOTRIGINE. [Suspect]
     Active Substance: LAMOTRIGINE
     Dosage: 100 MG, QD (INCREASED)
     Route: 065
     Dates: start: 20180317
  2. LAMOTRIGINE. [Suspect]
     Active Substance: LAMOTRIGINE
     Indication: PRODUCT USED FOR UNKNOWN INDICATION
     Dosage: 50 MG, BID (INCREASED TO 50MG TWICE DAILY)
     Route: 065
     Dates: start: 20180306, end: 20180316

REACTIONS (4)
  - Erythema [Unknown]
  - Eye swelling [Unknown]
  - Dermatitis bullous [Unknown]
  - Pruritus [Unknown]

NARRATIVE: CASE EVENT DATE: 20180319
